FAERS Safety Report 24551203 (Version 1)
Quarter: 2024Q4

REPORT INFORMATION
  Report Type: Spontaneous
  Country: US (occurrence: US)
  Receive Date: 20241025
  Receipt Date: 20241025
  Transmission Date: 20250115
  Serious: Yes (Hospitalization, Other)
  Sender: ELI LILLY AND COMPANY
  Company Number: US-ELI_LILLY_AND_COMPANY-US202410010329

PATIENT
  Age: 73 Year
  Sex: Female

DRUGS (1)
  1. FORTEO [Suspect]
     Active Substance: TERIPARATIDE
     Indication: Osteoporosis
     Dosage: 20 UG, UNKNOWN
     Route: 058

REACTIONS (6)
  - Cellulitis [Recovered/Resolved]
  - Syncope [Recovered/Resolved]
  - Lymphoedema [Not Recovered/Not Resolved]
  - Fall [Recovered/Resolved]
  - Product prescribing issue [Not Recovered/Not Resolved]
  - Injection site bruising [Not Recovered/Not Resolved]
